FAERS Safety Report 10256832 (Version 1)
Quarter: 2014Q2

REPORT INFORMATION
  Report Type: Report from Study
  Country: US (occurrence: US)
  Receive Date: 20140625
  Receipt Date: 20140625
  Transmission Date: 20141212
  Serious: Yes (Other)
  Sender: FDA-Public Use
  Company Number: US-ABBVIE-14P-163-1249367-00

PATIENT
  Sex: Female
  Weight: 56.75 kg

DRUGS (5)
  1. LUPRON [Suspect]
     Indication: ENDOMETRIOSIS
  2. TRAMADOL [Concomitant]
     Indication: PRODUCT USED FOR UNKNOWN INDICATION
  3. HYOSCYAMINE [Concomitant]
     Indication: PRODUCT USED FOR UNKNOWN INDICATION
     Dosage: UNKNOWN
  4. PROMETHAZINE [Concomitant]
     Indication: PRODUCT USED FOR UNKNOWN INDICATION
     Dosage: UNKNOWN
  5. NORTRIPTYLINE [Concomitant]
     Indication: PRODUCT USED FOR UNKNOWN INDICATION
     Dosage: UNKNOWN

REACTIONS (8)
  - Bladder neck suspension [Unknown]
  - Impaired gastric emptying [Unknown]
  - Endometriosis [Unknown]
  - Drug ineffective [Unknown]
  - Endometriosis [Unknown]
  - Endometriosis [Unknown]
  - Asthenia [Unknown]
  - Fatigue [Unknown]
